FAERS Safety Report 9883020 (Version 1)
Quarter: 2014Q1

REPORT INFORMATION
  Report Type: Spontaneous
  Country: FR (occurrence: FR)
  Receive Date: 20140208
  Receipt Date: 20140208
  Transmission Date: 20141002
  Serious: Yes (Hospitalization)
  Sender: FDA-Public Use
  Company Number: FR-ROCHE-1345092

PATIENT
  Age: 52 Year
  Sex: Male
  Weight: 84 kg

DRUGS (14)
  1. CELLCEPT [Suspect]
     Indication: PROPHYLAXIS AGAINST TRANSPLANT REJECTION
     Route: 048
     Dates: end: 20131110
  2. CELLCEPT [Suspect]
     Route: 048
  3. CELLCEPT [Suspect]
     Route: 048
  4. ROVALCYTE [Suspect]
     Indication: CYTOMEGALOVIRUS INFECTION
     Dosage: 450MG
     Route: 048
     Dates: start: 20131023, end: 20131110
  5. NEORAL [Concomitant]
     Route: 048
     Dates: start: 20131107
  6. PENTACARINAT [Concomitant]
     Indication: PROPHYLAXIS
     Route: 055
     Dates: start: 20131107
  7. SOLUPRED (FRANCE) [Concomitant]
     Route: 048
     Dates: start: 20131107
  8. FLECAINE [Concomitant]
     Dosage: LP
     Route: 048
     Dates: start: 20131023
  9. CLAMOXYL (FRANCE) [Concomitant]
     Dosage: 1 G
     Route: 048
     Dates: start: 20131021, end: 20131115
  10. DOLIPRANE [Concomitant]
     Indication: PAIN
     Dosage: 1 G
     Route: 048
     Dates: start: 20131023
  11. AMLOR [Concomitant]
     Indication: HYPERTENSION
     Dosage: 10 MG
     Route: 048
     Dates: start: 20131023
  12. INEXIUM [Concomitant]
     Dosage: 40 MG
     Route: 048
     Dates: start: 20131023
  13. SODIUM BICARBONATE [Concomitant]
     Route: 048
     Dates: start: 20131023
  14. TAHOR [Concomitant]
     Indication: DYSLIPIDAEMIA
     Dosage: 40 MG
     Route: 048
     Dates: start: 20101124

REACTIONS (1)
  - Agranulocytosis [Recovered/Resolved]
